FAERS Safety Report 7428404-3 (Version None)
Quarter: 2011Q2

REPORT INFORMATION
  Report Type: 
  Country: None (occurrence: None)
  Receive Date: 20110421
  Receipt Date: 20110411
  Transmission Date: 20111010
  Serious: Yes (Other)
  Sender: FDA-Public Use
  Company Number: PHHY2011VE26889

PATIENT
  Sex: Female

DRUGS (3)
  1. ACLASTA [Suspect]
     Indication: OSTEOPOROSIS
     Dosage: 5 MG, YEARLY
     Route: 042
     Dates: start: 20090901
  2. IDEOS [Concomitant]
  3. CRANBERRY [Concomitant]
     Indication: URINARY TRACT INFECTION

REACTIONS (2)
  - INFLUENZA [None]
  - URINARY TRACT INFECTION [None]
